FAERS Safety Report 16950241 (Version 1)
Quarter: 2019Q4

REPORT INFORMATION
  Report Type: Spontaneous
  Country: US (occurrence: US)
  Receive Date: 20191023
  Receipt Date: 20191023
  Transmission Date: 20200122
  Serious: No
  Sender: FDA-Public Use
  Company Number: US-PFIZER INC-2019455302

PATIENT
  Age: 49 Year
  Sex: Female
  Weight: 68.4 kg

DRUGS (3)
  1. EUCRISA [Suspect]
     Active Substance: CRISABOROLE
     Dosage: UNK (A FEW DAYS AGO)
     Route: 061
     Dates: start: 2019
  2. ANTABUSE [Suspect]
     Active Substance: DISULFIRAM
     Dosage: UNK
  3. EUCRISA [Suspect]
     Active Substance: CRISABOROLE
     Dosage: UNK (HAS USED IT OFF AND ON FOR THE LAST 6 MONTHS)
     Route: 061
     Dates: start: 2019

REACTIONS (1)
  - Hepatic enzyme increased [Unknown]
